FAERS Safety Report 4282106-3 (Version None)
Quarter: 2004Q1

REPORT INFORMATION
  Report Type: 
  Country: None (occurrence: None)
  Receive Date: 20040130
  Receipt Date: 20030702
  Transmission Date: 20041129
  Serious: No
  Sender: FDA-Public Use
  Company Number: US-BRISTOL-MYERS SQUIBB COMPANY-12316774

PATIENT
  Age: 47 Year
  Sex: Female
  Weight: 45 kg

DRUGS (1)
  1. DESYREL [Suspect]
     Indication: SLEEP DISORDER
     Dosage: 75 MG (1/2 OF A 150 MG TABLET) DAILY
     Route: 048

REACTIONS (2)
  - DIARRHOEA [None]
  - WEIGHT DECREASED [None]
